FAERS Safety Report 14048304 (Version 1)
Quarter: 2017Q4

REPORT INFORMATION
  Report Type: Report from Study
  Country: US (occurrence: US)
  Receive Date: 20171005
  Receipt Date: 20171005
  Transmission Date: 20180321
  Serious: Yes (Other)
  Sender: FDA-Public Use
  Company Number: PHEH2017US031823

PATIENT
  Weight: 122.4 kg

DRUGS (1)
  1. COSENTYX [Suspect]
     Active Substance: SECUKINUMAB
     Indication: JUVENILE PSORIATIC ARTHRITIS
     Dosage: 150 MG, QMO
     Route: 058

REACTIONS (3)
  - Chest pain [Unknown]
  - Product use in unapproved indication [Unknown]
  - Myalgia [Unknown]
